FAERS Safety Report 10182790 (Version 2)
Quarter: 2014Q2

REPORT INFORMATION
  Report Type: Spontaneous
  Country: IT (occurrence: IT)
  Receive Date: 20140520
  Receipt Date: 20140603
  Transmission Date: 20141212
  Serious: Yes (Other)
  Sender: FDA-Public Use
  Company Number: IT-BAYER-2014-069121

PATIENT
  Age: 46 Year
  Sex: Female

DRUGS (5)
  1. NEXAVAR [Suspect]
     Indication: CHEMOTHERAPY
     Dosage: DAILY DOSE 1 DF
     Route: 048
     Dates: start: 20140401, end: 20140404
  2. ENDOXAN [Suspect]
     Indication: CHEMOTHERAPY
     Dosage: DAILY DOSE 1 DF
     Route: 048
     Dates: start: 20140401, end: 20140404
  3. XELODA [Suspect]
     Dosage: DAILY DOSE 1 DF
     Route: 048
     Dates: start: 20140401, end: 20140404
  4. LOBIVON [Concomitant]
     Dosage: UNK
     Route: 048
  5. PAROXETINE HYDROCHLORIDE [Concomitant]
     Route: 048

REACTIONS (3)
  - Atrial fibrillation [Unknown]
  - Diarrhoea [Unknown]
  - Palpitations [Unknown]
